FAERS Safety Report 18412066 (Version 3)
Quarter: 2020Q4

REPORT INFORMATION
  Report Type: Spontaneous
  Country: DE (occurrence: DE)
  Receive Date: 20201021
  Receipt Date: 20201105
  Transmission Date: 20210114
  Serious: Yes (Hospitalization)
  Sender: FDA-Public Use
  Company Number: DE-BIOMARINAP-DE-2020-132670

PATIENT
  Age: 34 Year
  Sex: Female
  Weight: 28.9 kg

DRUGS (1)
  1. VIMIZIM [Suspect]
     Active Substance: ELOSULFASE ALFA
     Indication: MUCOPOLYSACCHARIDOSIS IV
     Dosage: 65 MILLIGRAM, QW
     Route: 042
     Dates: start: 20160801

REACTIONS (2)
  - Ileus [Recovered/Resolved]
  - Constipation [Recovered/Resolved]
